FAERS Safety Report 7385047-8 (Version None)
Quarter: 2011Q1

REPORT INFORMATION
  Report Type: 
  Country: None (occurrence: None)
  Receive Date: 20110330
  Receipt Date: 20110328
  Transmission Date: 20110831
  Serious: Yes (Other)
  Sender: FDA-Public Use
  Company Number: US-PFIZER INC-2011060468

PATIENT
  Sex: Male

DRUGS (3)
  1. CELEBREX [Suspect]
     Indication: ARTHRITIS
  2. CELEBREX [Suspect]
     Indication: BONE PAIN
  3. CELEBREX [Suspect]
     Indication: PAIN
     Dosage: 200 MG, DAILY
     Route: 048
     Dates: start: 20090101, end: 20110301

REACTIONS (4)
  - RENAL IMPAIRMENT [None]
  - OEDEMA [None]
  - ULCER HAEMORRHAGE [None]
  - ANAEMIA [None]
